FAERS Safety Report 17755190 (Version 1)
Quarter: 2020Q2

REPORT INFORMATION
  Report Type: Spontaneous
  Country: FR (occurrence: FR)
  Receive Date: 20200507
  Receipt Date: 20200507
  Transmission Date: 20200714
  Serious: Yes (Hospitalization)
  Sender: FDA-Public Use
  Company Number: NVSC2020FR120686

PATIENT
  Age: 30 Year
  Sex: Female
  Weight: 65 kg

DRUGS (1)
  1. OFLOXACINE SANDOZ 200 MG, FILMOMHULDE TABLETTEN [Suspect]
     Active Substance: OFLOXACIN
     Indication: URINARY TRACT INFECTION
     Dosage: 200 MG, QD
     Route: 048
     Dates: start: 20190724, end: 20190725

REACTIONS (41)
  - Neuropathy peripheral [Not Recovered/Not Resolved]
  - Migraine [Recovering/Resolving]
  - Muscle spasms [Not Recovered/Not Resolved]
  - Hepatic pain [Recovering/Resolving]
  - Eye pain [Recovered/Resolved]
  - Insomnia [Recovering/Resolving]
  - Disturbance in attention [Recovering/Resolving]
  - Suicidal ideation [Recovered/Resolved]
  - Chest discomfort [Recovering/Resolving]
  - Fluid retention [Not Recovered/Not Resolved]
  - Menstrual disorder [Recovering/Resolving]
  - Hypoaesthesia [Recovering/Resolving]
  - Diffuse alopecia [Not Recovered/Not Resolved]
  - Hypersensitivity [Not Recovered/Not Resolved]
  - Weight decreased [Recovering/Resolving]
  - Acne [Not Recovered/Not Resolved]
  - Skin wrinkling [Not Recovered/Not Resolved]
  - Amnesia [Recovering/Resolving]
  - Eczema [Not Recovered/Not Resolved]
  - Oral candidiasis [Recovered/Resolved]
  - Dyspnoea [Recovering/Resolving]
  - Taste disorder [Not Recovered/Not Resolved]
  - Paraesthesia [Recovered/Resolved]
  - Pollakiuria [Recovered/Resolved]
  - Renal pain [Recovering/Resolving]
  - Vulvovaginal mycotic infection [Recovered/Resolved]
  - Feeling abnormal [Recovering/Resolving]
  - Tension headache [Recovering/Resolving]
  - Headache [Not Recovered/Not Resolved]
  - Vascular pain [Recovered/Resolved]
  - Malnutrition [Not Recovered/Not Resolved]
  - Skin atrophy [Not Recovered/Not Resolved]
  - Anxiety [Recovering/Resolving]
  - Musculoskeletal pain [Not Recovered/Not Resolved]
  - Palpitations [Not Recovered/Not Resolved]
  - Depersonalisation/derealisation disorder [Recovering/Resolving]
  - Parosmia [Not Recovered/Not Resolved]
  - Gastrointestinal disorder [Not Recovered/Not Resolved]
  - Vision blurred [Recovering/Resolving]
  - Ear congestion [Recovering/Resolving]
  - Tendon pain [Not Recovered/Not Resolved]

NARRATIVE: CASE EVENT DATE: 20190724
